FAERS Safety Report 20887057 (Version 12)
Quarter: 2024Q2

REPORT INFORMATION
  Report Type: Report from Study
  Country: US (occurrence: US)
  Receive Date: 20220528
  Receipt Date: 20240426
  Transmission Date: 20240716
  Serious: Yes (Other)
  Sender: FDA-Public Use
  Company Number: US-ABBVIE-22K-163-4236033-00

PATIENT
  Sex: Male
  Weight: 113 kg

DRUGS (21)
  1. HUMIRA [Suspect]
     Active Substance: ADALIMUMAB
     Indication: Psoriasis
     Dosage: FORM STRENGTH: 40  MILLIGRAM CITRATE FREE
     Route: 058
     Dates: start: 20120405
  2. HUMIRA [Suspect]
     Active Substance: ADALIMUMAB
     Dosage: FORM STRENGTH: 40  MILLIGRAM CITRATE FREE
     Route: 058
     Dates: start: 20130105, end: 20210710
  3. HUMIRA [Suspect]
     Active Substance: ADALIMUMAB
     Dosage: LAST ADMIN DATE 2022?FORM STRENGTH: 40  MILLIGRAM CITRATE FREE
     Route: 058
     Dates: start: 20220507
  4. HUMIRA [Suspect]
     Active Substance: ADALIMUMAB
     Dosage: FORM STRENGTH: 40  MILLIGRAM CITRATE FREE
     Route: 058
  5. HUMIRA [Suspect]
     Active Substance: ADALIMUMAB
     Dosage: FORM STRENGTH: 40  MILLIGRAM CITRATE FREE
     Route: 058
  6. HUMIRA [Suspect]
     Active Substance: ADALIMUMAB
     Dosage: FORM STRENGTH: 40  MILLIGRAM CITRATE FREE
     Route: 058
  7. HUMIRA [Suspect]
     Active Substance: ADALIMUMAB
     Dosage: FORM STRENGTH: 40  MILLIGRAM CITRATE FREE
     Route: 058
  8. PFIZER-BIONTECH COVID-19 VACCINE [Suspect]
     Active Substance: TOZINAMERAN
     Indication: COVID-19 immunisation
     Dosage: TIME INTERVAL: TOTAL: FIRST DOSE?1 IN ONCE
     Route: 030
     Dates: start: 20210418, end: 20210418
  9. PFIZER-BIONTECH COVID-19 VACCINE [Suspect]
     Active Substance: TOZINAMERAN
     Indication: COVID-19 immunisation
     Dosage: TIME INTERVAL: TOTAL: SECOND DOSE?1 IN ONCE
     Route: 030
     Dates: start: 20210508, end: 20210508
  10. PFIZER-BIONTECH COVID-19 VACCINE [Suspect]
     Active Substance: TOZINAMERAN
     Indication: COVID-19 immunisation
     Dosage: TIME INTERVAL: TOTAL: THIRD DOSE?1 IN ONCE
     Route: 030
     Dates: start: 20211227, end: 20211227
  11. XIIDRA [Concomitant]
     Active Substance: LIFITEGRAST
     Indication: Dry eye
  12. SINGULAIR [Concomitant]
     Active Substance: MONTELUKAST SODIUM
     Indication: Hypersensitivity
  13. MONTELUKAST SODIUM [Concomitant]
     Active Substance: MONTELUKAST SODIUM
     Indication: Product used for unknown indication
  14. DICLOFENAC SODIUM [Concomitant]
     Active Substance: DICLOFENAC\DICLOFENAC SODIUM
     Indication: Inflammation
  15. VITAMINS [Concomitant]
     Active Substance: VITAMINS
     Indication: Product used for unknown indication
  16. FISH OIL [Concomitant]
     Active Substance: FISH OIL
     Indication: Product used for unknown indication
  17. GLUCOSAMINE [Concomitant]
     Active Substance: GLUCOSAMINE
     Indication: Product used for unknown indication
  18. PATADAY [Concomitant]
     Active Substance: OLOPATADINE HYDROCHLORIDE
     Indication: Product used for unknown indication
  19. REFRESH TEARS [Concomitant]
     Active Substance: CARBOXYMETHYLCELLULOSE SODIUM
     Indication: Product used for unknown indication
  20. VITAMIN D3 [Concomitant]
     Active Substance: CHOLECALCIFEROL
     Indication: Product used for unknown indication
  21. XYZAL [Concomitant]
     Active Substance: LEVOCETIRIZINE DIHYDROCHLORIDE
     Indication: Product used for unknown indication

REACTIONS (33)
  - Gait disturbance [Recovered/Resolved]
  - Cartilage injury [Recovered/Resolved]
  - Hip arthroplasty [Recovered/Resolved]
  - Psoriasis [Recovered/Resolved]
  - Irritable bowel syndrome [Unknown]
  - Skin plaque [Recovered/Resolved]
  - Immunisation reaction [Recovering/Resolving]
  - Nerve compression [Unknown]
  - Sleep apnoea syndrome [Recovered/Resolved]
  - Hip surgery [Recovered/Resolved]
  - Paranasal sinus hypersecretion [Unknown]
  - Anxiety [Recovered/Resolved]
  - Sinus congestion [Unknown]
  - Fatigue [Unknown]
  - Dry skin [Not Recovered/Not Resolved]
  - Arthropathy [Unknown]
  - Muscle strain [Recovered/Resolved]
  - Hypersensitivity [Unknown]
  - Urticaria [Unknown]
  - Otorrhoea [Not Recovered/Not Resolved]
  - Oropharyngeal pain [Unknown]
  - Arthralgia [Recovered/Resolved]
  - Arthralgia [Not Recovered/Not Resolved]
  - Skin fissures [Unknown]
  - Limb injury [Unknown]
  - Psoriasis [Recovered/Resolved]
  - Skin fissures [Recovered/Resolved]
  - Psoriasis [Not Recovered/Not Resolved]
  - Skin plaque [Recovering/Resolving]
  - Ear disorder [Not Recovered/Not Resolved]
  - Skin haemorrhage [Unknown]
  - Skin weeping [Unknown]
  - Hypoacusis [Unknown]

NARRATIVE: CASE EVENT DATE: 20180101
